FAERS Safety Report 9846464 (Version 4)
Quarter: 2015Q1

REPORT INFORMATION
  Report Type: Spontaneous
  Country: US (occurrence: None)
  Receive Date: 20140122
  Receipt Date: 20150304
  Transmission Date: 20150721
  Serious: Yes (Hospitalization)
  Sender: FDA-Public Use
  Company Number: 2014SGN00007

PATIENT
  Age: 65 Year
  Sex: Female
  Weight: 54.8 kg

DRUGS (2)
  1. BRENTUXIMAB VEDOTIN [Suspect]
     Active Substance: BRENTUXIMAB VEDOTIN
     Indication: HODGKIN^S DISEASE
     Route: 042
     Dates: start: 20131211, end: 20140102
  2. BENDAMUSTINE HYDROCHLORIDE [Suspect]
     Active Substance: BENDAMUSTINE HYDROCHLORIDE
     Indication: HODGKIN^S DISEASE
     Dosage: 90 MG/M2, QCYCLE, INTRAVENOUS
     Route: 042
     Dates: start: 20131211, end: 20140102

REACTIONS (14)
  - Dehydration [None]
  - Pyrexia [None]
  - Nausea [None]
  - Arthralgia [None]
  - Rash [None]
  - Alanine aminotransferase increased [None]
  - Chills [None]
  - Hypotension [None]
  - Decreased appetite [None]
  - Malaise [None]
  - Vomiting [None]
  - Erythema [None]
  - Myalgia [None]
  - Aspartate aminotransferase increased [None]

NARRATIVE: CASE EVENT DATE: 20140102
